FAERS Safety Report 16411548 (Version 1)
Quarter: 2019Q2

REPORT INFORMATION
  Report Type: Spontaneous
  Country: HR (occurrence: HR)
  Receive Date: 20190610
  Receipt Date: 20190610
  Transmission Date: 20190711
  Serious: Yes (Other)
  Sender: FDA-Public Use
  Company Number: HR-INDIVIOR LIMITED-INDV-119938-2019

PATIENT
  Age: 16 Year
  Sex: Male

DRUGS (8)
  1. KVENTIAX [Suspect]
     Active Substance: QUETIAPINE FUMARATE
     Indication: PRODUCT USED FOR UNKNOWN INDICATION
     Dosage: 1 DOSE, UNK
     Route: 048
     Dates: start: 20190220, end: 20190220
  2. SUBUTEX [Suspect]
     Active Substance: BUPRENORPHINE HYDROCHLORIDE
     Indication: PRODUCT USED FOR UNKNOWN INDICATION
     Dosage: 1 DOSE, UNK
     Route: 048
     Dates: start: 20190220, end: 20190220
  3. PREGABALIN. [Suspect]
     Active Substance: PREGABALIN
     Indication: PRODUCT USED FOR UNKNOWN INDICATION
     Dosage: 1 DOSE, UNK
     Route: 048
     Dates: start: 20190220, end: 20190220
  4. MISAR                              /00595201/ [Suspect]
     Active Substance: ALPRAZOLAM
     Indication: PRODUCT USED FOR UNKNOWN INDICATION
     Dosage: 1 DOSE, UNK
     Route: 048
     Dates: start: 20190220, end: 20190220
  5. SERPENTIL                          /01588502/ [Suspect]
     Active Substance: ESCITALOPRAM OXALATE
     Indication: PRODUCT USED FOR UNKNOWN INDICATION
     Dosage: 1 DOSE, UNK
     Route: 048
     Dates: start: 20190220, end: 20190220
  6. SANVAL [Suspect]
     Active Substance: ZOLPIDEM TARTRATE
     Indication: PRODUCT USED FOR UNKNOWN INDICATION
     Dosage: 1 DOSE, UNK
     Route: 048
     Dates: start: 20190220, end: 20190220
  7. NORMABEL [Suspect]
     Active Substance: DIAZEPAM
     Indication: PRODUCT USED FOR UNKNOWN INDICATION
     Dosage: 1 DOSE, UNK
     Route: 048
     Dates: start: 20190220, end: 20190220
  8. XANAX [Suspect]
     Active Substance: ALPRAZOLAM
     Indication: PRODUCT USED FOR UNKNOWN INDICATION
     Dosage: 1 DOSE, UNK
     Route: 048
     Dates: start: 20190220, end: 20190220

REACTIONS (5)
  - Drug abuse [Recovered/Resolved]
  - Agitation [Unknown]
  - Product use issue [Recovered/Resolved]
  - Blood potassium increased [Unknown]
  - Bradycardia [Unknown]

NARRATIVE: CASE EVENT DATE: 201902
